FAERS Safety Report 7300528-0 (Version None)
Quarter: 2011Q1

REPORT INFORMATION
  Report Type: 
  Country: None (occurrence: None)
  Receive Date: 20110217
  Receipt Date: 20110128
  Transmission Date: 20110831
  Serious: Yes (Hospitalization, Other)
  Sender: FDA-Public Use
  Company Number: DE-B.I. PHARMACEUTICALS,INC./RIDGEFIELD-2011-BP-02226BP

PATIENT
  Age: 55 Year
  Sex: Male

DRUGS (29)
  1. RITONAVIR [Suspect]
     Indication: HIV INFECTION
     Dosage: 400 MG
     Route: 065
     Dates: start: 20040225
  2. ATAZANAVIR SULFATE [Suspect]
     Indication: HIV INFECTION
     Dosage: 300 MG
     Dates: start: 20060609, end: 20061022
  3. TRUVADA [Suspect]
     Indication: HIV INFECTION
     Route: 048
     Dates: start: 20060609, end: 20081116
  4. LAMIVUDINE [Suspect]
     Indication: HIV INFECTION
     Dosage: 300 MG
     Dates: start: 20081118
  5. CLOPIDOGREL BISULFATE [Concomitant]
  6. PENTAERRITHRITYL TETRANITRATE (PENTAERRITHRITYL TETRANITRATE) [Concomitant]
     Dates: start: 20070410
  7. FLUVASTATIN SODIUM [Concomitant]
     Dates: start: 20070517
  8. LEVOTHYROXINE SODIUM [Concomitant]
     Dates: start: 20091125
  9. LOPERAMIDE HYDROCHLORIDE [Concomitant]
     Dates: start: 20060927
  10. OMEGA-3 MARINE TRIGLYCERIDES (OMEGA-3 MARINE TRIGLYCERIDES) [Concomitant]
  11. ZOLPIDEM TARTRATE (ZOLIPDEM TARTRATE) [Concomitant]
     Dates: start: 20080710
  12. PRAVASTATIN SODIUM [Concomitant]
     Dates: start: 20090922
  13. TAB MK-0518 [Suspect]
     Indication: HIV INFECTION
     Dosage: 800 MG
     Route: 048
     Dates: start: 20061023
  14. EZETIMIBE [Concomitant]
     Dates: start: 20070306
  15. METOPROLOL SUCCINATE [Concomitant]
     Dates: start: 20070411
  16. ACETLYSALICYLIC ACID (ACETYLSALICYLIC ACID) [Concomitant]
  17. TAMSULOSIN HCL [Concomitant]
  18. RITONAVIR [Suspect]
     Dosage: 400 MG
     Route: 065
     Dates: start: 20061023
  19. DIDANOSINE [Suspect]
     Indication: HIV INFECTION
     Dosage: 250 MG
     Dates: start: 20061023
  20. EFAVIRENZ [Suspect]
     Indication: HIV INFECTION
     Dosage: 600 MG
     Dates: start: 20061023
  21. ENFURVIRTIDE [Suspect]
     Indication: HIV INFECTION
     Dosage: 180 MG
     Dates: start: 20060609, end: 20060620
  22. NITROGLYCERIN [Concomitant]
  23. RAMIPRIL [Concomitant]
     Dates: start: 20100322
  24. APTIVUS/RITONAVIR CAPSULES [Suspect]
     Indication: HIV INFECTION
     Dosage: 1000 MG
     Dates: start: 20061023
  25. RALTEGRAVIR [Suspect]
     Indication: HIV INFECTION
     Dosage: 400 MG
     Route: 048
     Dates: start: 20061023
  26. IBUPROFEN [Concomitant]
  27. BLINDED THERAPY [Suspect]
     Indication: HIV INFECTION
     Route: 048
     Dates: start: 20060609, end: 20061022
  28. SAQUINAVIR [Suspect]
     Indication: HIV INFECTION
     Dosage: 2000 MG
     Dates: start: 20060609, end: 20061022
  29. TRIMIPRAMINE MALEATE [Concomitant]
     Dates: start: 20070618

REACTIONS (9)
  - MOVEMENT DISORDER [None]
  - PARKINSONISM [None]
  - FINE MOTOR DELAY [None]
  - DISORIENTATION [None]
  - APHASIA [None]
  - ANGINA UNSTABLE [None]
  - MUSCLE SPASMS [None]
  - ACUTE MYOCARDIAL INFARCTION [None]
  - NEURODEGENERATIVE DISORDER [None]
